FAERS Safety Report 10972637 (Version 2)
Quarter: 2015Q2

REPORT INFORMATION
  Report Type: Spontaneous
  Country: US (occurrence: US)
  Receive Date: 20150331
  Receipt Date: 20150525
  Transmission Date: 20150821
  Serious: Yes (Other)
  Sender: FDA-Public Use
  Company Number: US-JNJFOC-20130415763

PATIENT
  Sex: Male
  Weight: 72.58 kg

DRUGS (3)
  1. RISPERDAL [Suspect]
     Active Substance: RISPERIDONE
     Indication: TOURETTE^S DISORDER
     Route: 048
     Dates: start: 200602, end: 200901
  2. CLONIDINE. [Concomitant]
     Active Substance: CLONIDINE
     Route: 065
  3. TENEX [Concomitant]
     Active Substance: GUANFACINE HYDROCHLORIDE
     Route: 065

REACTIONS (7)
  - Headache [Unknown]
  - Emotional distress [Unknown]
  - Gynaecomastia [Recovering/Resolving]
  - Product use issue [Unknown]
  - Dizziness [Unknown]
  - Drug ineffective [Unknown]
  - Weight increased [Recovered/Resolved]
